FAERS Safety Report 21953931 (Version 1)
Quarter: 2023Q1

REPORT INFORMATION
  Report Type: Spontaneous
  Country: CN (occurrence: CN)
  Receive Date: 20230204
  Receipt Date: 20230204
  Transmission Date: 20230417
  Serious: Yes (Other)
  Sender: FDA-Public Use
  Company Number: None

PATIENT
  Age: 75 Year
  Sex: Male
  Weight: 65 kg

DRUGS (4)
  1. MANNITOL [Suspect]
     Active Substance: MANNITOL
     Indication: Polyuria
     Dosage: 25 GRAMS (G) AND ONCE DAILY (DOSAGE FORM: INJECTION)
     Route: 041
     Dates: start: 20230112, end: 20230116
  2. PIPERACILLIN AND TAZOBACTAM [Suspect]
     Active Substance: PIPERACILLIN SODIUM\TAZOBACTAM SODIUM
     Indication: Anti-infective therapy
     Dosage: 4.5 GRAMS (G) DILUTED IN 100 ML OF 0.9% SODIUM CHLORIDE AND THREE TIMES DAILY
     Route: 041
     Dates: start: 20230116, end: 20230116
  3. PIPERACILLIN AND TAZOBACTAM [Suspect]
     Active Substance: PIPERACILLIN SODIUM\TAZOBACTAM SODIUM
     Indication: Skin infection
  4. SODIUM CHLORIDE [Suspect]
     Active Substance: SODIUM CHLORIDE
     Indication: Vehicle solution use
     Dosage: 100 MILLILITERS (ML) AND THREE TIMES DAILY
     Route: 041
     Dates: start: 20230116, end: 20230116

REACTIONS (6)
  - Pallor [Recovering/Resolving]
  - Oxygen saturation decreased [Recovering/Resolving]
  - Heart rate increased [Recovering/Resolving]
  - Flushing [Recovering/Resolving]
  - Dyspnoea [Recovering/Resolving]
  - Palpitations [Recovering/Resolving]

NARRATIVE: CASE EVENT DATE: 20230116
